FAERS Safety Report 5648575-9 (Version None)
Quarter: 2008Q1

REPORT INFORMATION
  Report Type: 
  Country: None (occurrence: None)
  Receive Date: 20080131
  Receipt Date: 20071120
  Transmission Date: 20080703
  Serious: No
  Sender: FDA-Public Use
  Company Number: US200707004077

PATIENT
  Age: 76 Year
  Sex: Female
  Weight: 80.7 kg

DRUGS (5)
  1. BYETTA [Suspect]
     Indication: TYPE 2 DIABETES MELLITUS
     Dosage: 5 UG, 2/D, SUBCUTANEOUS
     Route: 058
     Dates: start: 20070604
  2. EXENATIDE 5MCG PEN, DISPOSABLE DEVICE (EXENATIDE PEN (5MCG))) PEN,DISP [Concomitant]
  3. AMARYL [Concomitant]
  4. GLUCOPHAGE [Concomitant]
  5. MULTIVITAMIN [Concomitant]

REACTIONS (5)
  - BLOOD GLUCOSE INCREASED [None]
  - DECREASED APPETITE [None]
  - INCREASED APPETITE [None]
  - INJECTION SITE WARMTH [None]
  - WEIGHT DECREASED [None]
